FAERS Safety Report 4658957-X (Version None)
Quarter: 2005Q2

REPORT INFORMATION
  Report Type: 
  Country: None (occurrence: None)
  Receive Date: 20050509
  Receipt Date: 20050426
  Transmission Date: 20051028
  Serious: Yes (Hospitalization, Disabling)
  Sender: FDA-Public Use
  Company Number: 04P-087-0256484-00

PATIENT
  Age: 33 Year
  Sex: Male

DRUGS (30)
  1. KALETRA SOLFT GELATIN CAPSULES (LOPINAVIR/RITONAVIR) [Suspect]
     Indication: HIV INFECTION
     Dosage: 6 CAPSULE, 1 IN 1 D, PER ORAL
     Route: 048
     Dates: start: 20030604, end: 20030731
  2. KALETRA SOLFT GELATIN CAPSULES (LOPINAVIR/RITONAVIR) [Suspect]
     Indication: HIV INFECTION
     Dosage: 6 CAPSULE, 1 IN 1 D, PER ORAL
     Route: 048
     Dates: start: 20030827, end: 20030831
  3. KALETRA SOLFT GELATIN CAPSULES (LOPINAVIR/RITONAVIR) [Suspect]
     Indication: HIV INFECTION
     Dosage: 6 CAPSULE, 1 IN 1 D, PER ORAL
     Route: 048
     Dates: start: 20030913, end: 20030916
  4. KALETRA [Suspect]
     Indication: HIV INFECTION
     Dosage: 10 ML, 1 IN 1 D, PER ORAL
     Route: 048
     Dates: start: 20030530, end: 20030603
  5. STAVUDINE [Suspect]
     Indication: HIV INFECTION
     Dosage: 60 MG, 1 IN 1 D, PER ORAL
     Route: 048
     Dates: start: 20030530, end: 20030731
  6. STAVUDINE [Suspect]
     Indication: HIV INFECTION
     Dosage: 60 MG, 1 IN 1 D, PER ORAL
     Route: 048
     Dates: start: 20030827, end: 20030831
  7. STAVUDINE [Suspect]
     Indication: HIV INFECTION
     Dosage: 60 MG, 1 IN 1 D, PER ORAL
     Route: 048
     Dates: start: 20030913, end: 20040228
  8. LAMIVUDINE [Suspect]
     Indication: HIV INFECTION
     Dosage: 150 MG, 2 IN 1 D, PER ORAL
     Route: 048
     Dates: start: 20030530, end: 20030603
  9. LAMIVUDINE [Suspect]
     Indication: HIV INFECTION
     Dosage: 150 MG, 2 IN 1 D, PER ORAL
     Route: 048
     Dates: start: 20030604, end: 20030731
  10. LAMIVUDINE [Suspect]
     Indication: HIV INFECTION
     Dosage: 150 MG, 2 IN 1 D, PER ORAL
     Route: 048
     Dates: start: 20030827, end: 20030831
  11. LAMIVUDINE [Suspect]
     Indication: HIV INFECTION
     Dosage: 150 MG, 2 IN 1 D, PER ORAL
     Route: 048
     Dates: start: 20030913, end: 20040228
  12. NELFINAVIR [Suspect]
     Indication: HIV INFECTION
     Dosage: 2500 MG, 1 IN 1 D, PER ORAL
     Route: 048
     Dates: start: 20030917, end: 20040228
  13. AZITHROMYCIN [Suspect]
     Indication: MYCOBACTERIUM AVIUM COMPLEX INFECTION
     Dosage: 1200 MG, 1 IN 1 WK, PER ORAL
     Route: 048
     Dates: start: 20030602, end: 20030728
  14. AZITHROMYCIN [Suspect]
     Indication: PROPHYLAXIS
     Dosage: 1200 MG, 1 IN 1 WK, PER ORAL
     Route: 048
     Dates: start: 20030602, end: 20030728
  15. BACTRIM [Suspect]
     Indication: INFECTION PROPHYLAXIS
     Dosage: SEE IMAGE
     Route: 048
     Dates: start: 20030417, end: 20030507
  16. BACTRIM [Suspect]
     Indication: INFECTION PROPHYLAXIS
     Dosage: SEE IMAGE
     Route: 048
     Dates: start: 20030529, end: 20030731
  17. BACTRIM [Suspect]
     Indication: INFECTION PROPHYLAXIS
     Dosage: SEE IMAGE
     Route: 048
     Dates: start: 20030827, end: 20030830
  18. BACTRIM [Suspect]
     Indication: INFECTION PROPHYLAXIS
     Dosage: SEE IMAGE
     Route: 048
     Dates: start: 20030910, end: 20040228
  19. FLUCONAZOLE [Suspect]
     Indication: STERILISATION
     Dosage: 100 MG, 2 IN 1 D, INTRAVENOUS
     Route: 042
     Dates: start: 20030530, end: 20030731
  20. FLUCONAZOLE [Suspect]
     Indication: STERILISATION
     Dosage: 100 MG, 2 IN 1 D, INTRAVENOUS
     Route: 042
     Dates: start: 20030827, end: 20030830
  21. FLUCONAZOLE [Suspect]
     Indication: STERILISATION
     Dosage: 100 MG, 2 IN 1 D, INTRAVENOUS
     Route: 042
     Dates: start: 20030910, end: 20031130
  22. CIPROFLOXACIN HCL [Suspect]
     Indication: STERILISATION
     Dosage: 200 MG, 3 IN 1 D, INTRAVENOUS
     Route: 042
     Dates: start: 20030530, end: 20030731
  23. CIPROFLOXACIN HCL [Suspect]
     Indication: STERILISATION
     Dosage: 200 MG, 3 IN 1 D, INTRAVENOUS
     Route: 042
     Dates: start: 20030827, end: 20030930
  24. CIPROFLOXACIN HCL [Suspect]
     Indication: STERILISATION
     Dosage: 200 MG, 3 IN 1 D, INTRAVENOUS
     Route: 042
     Dates: start: 20030910, end: 20031130
  25. PENTAMIDINE ISETHIONATE [Concomitant]
  26. SCOPOLAMINE BUTYLBROMIDE [Concomitant]
  27. PENTAZOCINE LACTATE [Concomitant]
  28. MORPHINE HCL ELIXIR [Concomitant]
  29. FLURBIPROFEN AXETIL [Concomitant]
  30. CHEMOTHERAPY [Concomitant]

REACTIONS (6)
  - ANAEMIA [None]
  - ATRIOVENTRICULAR BLOCK SECOND DEGREE [None]
  - ILEUS [None]
  - NAUSEA [None]
  - THROMBOCYTOPENIA [None]
  - WHITE BLOOD CELL COUNT DECREASED [None]
